FAERS Safety Report 24345796 (Version 1)
Quarter: 2024Q3

REPORT INFORMATION
  Report Type: Spontaneous
  Country: KR (occurrence: KR)
  Receive Date: 20240920
  Receipt Date: 20240920
  Transmission Date: 20241017
  Serious: Yes (Other)
  Sender: VIVUS
  Company Number: KR-VIVUS LLC-2023V1001247

PATIENT
  Age: 41 Year
  Sex: Male

DRUGS (1)
  1. QSYMIA [Suspect]
     Active Substance: PHENTERMINE HYDROCHLORIDE\TOPIRAMATE
     Indication: Product used for unknown indication
     Route: 065

REACTIONS (3)
  - Angle closure glaucoma [Unknown]
  - Intraocular pressure increased [Unknown]
  - Visual acuity reduced [Unknown]
